FAERS Safety Report 8010315-6 (Version None)
Quarter: 2011Q4

REPORT INFORMATION
  Report Type: 
  Country: None (occurrence: None)
  Receive Date: 20111228
  Receipt Date: 20111222
  Transmission Date: 20120403
  Serious: No
  Sender: FDA-Public Use
  Company Number: DE-JNJFOC-20110907281

PATIENT
  Sex: Male
  Weight: 90 kg

DRUGS (5)
  1. XARELTO [Suspect]
     Route: 048
     Dates: start: 20110905
  2. XARELTO [Suspect]
     Route: 048
     Dates: start: 20111130
  3. METOPROLOL SUCCINATE [Concomitant]
  4. XARELTO [Suspect]
     Indication: THROMBOSIS PROPHYLAXIS
     Route: 048
     Dates: start: 20110905
  5. XARELTO [Suspect]
     Indication: ATRIAL FIBRILLATION
     Route: 048
     Dates: start: 20111130

REACTIONS (1)
  - BLOOD PRESSURE INCREASED [None]
